FAERS Safety Report 24569282 (Version 1)
Quarter: 2024Q4

REPORT INFORMATION
  Report Type: Spontaneous
  Country: FR (occurrence: FR)
  Receive Date: 20241031
  Receipt Date: 20241031
  Transmission Date: 20250114
  Serious: Yes (Hospitalization)
  Sender: PFIZER
  Company Number: None

PATIENT
  Age: 43 Year
  Sex: Female
  Weight: 66 kg

DRUGS (2)
  1. ETHINYL ESTRADIOL\LEVONORGESTREL [Suspect]
     Active Substance: ETHINYL ESTRADIOL\LEVONORGESTREL
     Indication: Hormonal contraception
     Dosage: 1 DF, 1X/DAY
     Route: 048
     Dates: start: 1996, end: 2012
  2. MIRENA [Suspect]
     Active Substance: LEVONORGESTREL
     Indication: Intrauterine contraception
     Dosage: 52 MG (20 MICROGRAMS/24 HOURS), INTRAUTERINE DEVICE
     Route: 015
     Dates: start: 2019, end: 202401

REACTIONS (1)
  - Meningioma [Recovering/Resolving]

NARRATIVE: CASE EVENT DATE: 20231201
